FAERS Safety Report 5606822-3 (Version None)
Quarter: 2008Q1

REPORT INFORMATION
  Report Type: 
  Country: None (occurrence: None)
  Receive Date: 20080129
  Receipt Date: 20080121
  Transmission Date: 20080703
  Serious: Yes (Death)
  Sender: FDA-Public Use
  Company Number: JP-ABBOTT-08P-087-0434342-00

PATIENT
  Age: 70 Year
  Sex: Male

DRUGS (15)
  1. LEUPROLIDE ACETATE [Suspect]
     Indication: PROSTATE CANCER STAGE IV
     Route: 058
     Dates: start: 20060419
  2. LEUPROLIDE ACETATE [Suspect]
     Dates: start: 20060126, end: 20060322
  3. LANSOPRAZOLE [Concomitant]
     Indication: COLON CANCER
     Route: 048
  4. LANSOPRAZOLE [Concomitant]
     Indication: METASTASES TO LIVER
  5. CHLORMADINONE ACETATE TAB [Concomitant]
     Indication: PROSTATE CANCER STAGE IV
     Route: 048
  6. URSODIOL [Concomitant]
     Indication: COLON CANCER
     Route: 048
  7. URSODIOL [Concomitant]
     Indication: METASTASES TO LIVER
  8. FERROUS CITRATE [Concomitant]
     Indication: COLON CANCER
     Route: 048
  9. FERROUS CITRATE [Concomitant]
     Indication: METASTASES TO LIVER
  10. METOPROLOL TARTRATE [Concomitant]
     Indication: COLON CANCER
     Route: 048
  11. METOPROLOL TARTRATE [Concomitant]
     Indication: METASTASES TO LIVER
  12. TRICHLORMETHIAZIDE [Concomitant]
     Indication: COLON CANCER
     Route: 048
  13. TRICHLORMETHIAZIDE [Concomitant]
     Indication: METASTASES TO LIVER
  14. TEGAFUR URACIL [Concomitant]
     Indication: COLON CANCER
     Route: 048
  15. TEGAFUR URACIL [Concomitant]
     Indication: METASTASES TO LIVER

REACTIONS (3)
  - COLON CANCER [None]
  - HEPATIC ENCEPHALOPATHY [None]
  - METASTASES TO LIVER [None]
